FAERS Safety Report 8621662-9 (Version None)
Quarter: 2012Q3

REPORT INFORMATION
  Report Type: 
  Country: None (occurrence: None)
  Receive Date: 20120821
  Receipt Date: 20120821
  Transmission Date: 20120928
  Serious: Yes (Hospitalization)
  Sender: FDA-Public Use
  Company Number: None

PATIENT
  Sex: Female
  Weight: 49.8957 kg

DRUGS (2)
  1. FENTANYL CITRATE [Suspect]
     Indication: BACK PAIN
     Dosage: 50 MG  50 MCG
     Dates: start: 20090101, end: 20120101
  2. FENTANYL CITRATE [Suspect]
     Indication: NECK PAIN
     Dosage: 50 MG  50 MCG
     Dates: start: 20090101, end: 20120101

REACTIONS (5)
  - MALAISE [None]
  - APHASIA [None]
  - TOXICITY TO VARIOUS AGENTS [None]
  - ABASIA [None]
  - CONFUSIONAL STATE [None]
